FAERS Safety Report 18126818 (Version 1)
Quarter: 2020Q3

REPORT INFORMATION
  Report Type: Spontaneous
  Country: FR (occurrence: FR)
  Receive Date: 20200809
  Receipt Date: 20200809
  Transmission Date: 20201103
  Serious: Yes (Other)
  Sender: FDA-Public Use
  Company Number: FR-CELLTRION INC.-2020FR024931

PATIENT

DRUGS (2)
  1. INFLIXIMAB (UNKNOWN) [Suspect]
     Active Substance: INFLIXIMAB
     Indication: AXIAL SPONDYLOARTHRITIS
     Dosage: 5 MG/KG
     Route: 065
  2. METHOTREXATE. [Concomitant]
     Active Substance: METHOTREXATE
     Indication: AXIAL SPONDYLOARTHRITIS
     Dosage: UNK
     Route: 065

REACTIONS (3)
  - Castleman^s disease [Unknown]
  - Off label use [Unknown]
  - Product use in unapproved indication [Unknown]
